FAERS Safety Report 8568777 (Version 2)
Quarter: 2013Q2

REPORT INFORMATION
  Report Type: Spontaneous
  Country: US (occurrence: US)
  Receive Date: 20120518
  Receipt Date: 20130528
  Transmission Date: 20140414
  Serious: Yes (Hospitalization)
  Sender: FDA-Public Use
  Company Number: US-B.I. PHARMACEUTICALS,INC./RIDGEFIELD-2012-BP-10542BP

PATIENT
  Age: 61 Year
  Sex: Female

DRUGS (36)
  1. SPIRIVA [Suspect]
     Indication: CHRONIC OBSTRUCTIVE PULMONARY DISEASE
     Dosage: 18 MCG
     Route: 055
     Dates: start: 2004
  2. COMBIVENT [Suspect]
     Indication: CHRONIC OBSTRUCTIVE PULMONARY DISEASE
     Dosage: STRENGTH: 18 MCG / 103 MCG; DAILY DOSE: 144 MCG/ 824  MCG
     Route: 055
     Dates: start: 1996
  3. ACCOLATE [Concomitant]
     Indication: ASTHMA
     Dosage: 40 MG
     Route: 048
  4. ACCOLATE [Concomitant]
     Indication: CHRONIC OBSTRUCTIVE PULMONARY DISEASE
  5. ADVAIR [Concomitant]
     Indication: ASTHMA
     Dosage: STRENGTH: 500/50; DAILY DOSE: 1000/100
     Route: 055
  6. ADVAIR [Concomitant]
     Indication: CHRONIC OBSTRUCTIVE PULMONARY DISEASE
  7. AMBIEN [Concomitant]
     Indication: SLEEP DISORDER
  8. ASPIRIN [Concomitant]
     Indication: PROPHYLAXIS
     Dosage: 81 MG
     Route: 048
  9. CITALOPRAM [Concomitant]
     Indication: DEPRESSION
     Dosage: 40 MG
     Route: 048
  10. CLARITIN [Concomitant]
     Indication: HYPERSENSITIVITY
     Route: 048
  11. COLCRYS [Concomitant]
     Indication: GOUT
     Dosage: 0.6 MG
     Route: 048
  12. FISH OIL [Concomitant]
     Indication: SUPPLEMENTATION THERAPY
  13. FLEXERIL [Concomitant]
     Indication: FIBROMYALGIA
     Dosage: 40 MG
     Route: 048
  14. LISINOPRIL [Concomitant]
     Indication: HYPERTENSION
     Dosage: 5 MG
     Route: 048
  15. MULTIVITAMIN [Concomitant]
     Indication: SUPPLEMENTATION THERAPY
  16. NAPROXEN [Concomitant]
     Indication: GOUT
     Dosage: 1000 MG
     Route: 048
  17. NEURONTIN [Concomitant]
     Indication: FIBROMYALGIA
     Dosage: 300 MG
     Route: 048
  18. NEXIUM [Concomitant]
     Indication: GASTROOESOPHAGEAL REFLUX DISEASE
     Dosage: 40 MG
     Route: 048
  19. NEXIUM [Concomitant]
     Indication: GASTRIC ULCER
     Dosage: 40 MG
     Route: 048
  20. PREDNISONE [Concomitant]
     Indication: BRONCHITIS
     Dosage: 2.5 MG
     Route: 048
  21. PREDNISONE [Concomitant]
     Indication: HYPERSENSITIVITY
  22. THEOPHYLLINE [Concomitant]
     Indication: BRONCHITIS
     Dosage: 600 MG
     Route: 048
  23. THEOPHYLLINE [Concomitant]
     Indication: CHRONIC OBSTRUCTIVE PULMONARY DISEASE
     Dosage: 600 MG
     Route: 048
  24. VITAMIN A [Concomitant]
     Indication: SUPPLEMENTATION THERAPY
  25. VITAMIN D [Concomitant]
     Indication: SUPPLEMENTATION THERAPY
  26. XANAX [Concomitant]
     Indication: ANXIETY
     Dosage: 200 MG
     Route: 048
  27. ZOCOR [Concomitant]
     Indication: BLOOD CHOLESTEROL INCREASED
     Dosage: 40 MG
     Route: 048
  28. ZYRTEC [Concomitant]
     Indication: HYPERSENSITIVITY
     Route: 048
  29. DIPHENHYDRAMINE [Concomitant]
     Indication: CHRONIC SINUSITIS
     Dosage: 75 MG
     Route: 048
  30. HYDROCODONE APA [Concomitant]
     Indication: PAIN
     Dosage: STRENGTH: 10MG / 325 MG
     Route: 048
  31. SIMVASTATIN [Concomitant]
     Indication: BLOOD CHOLESTEROL INCREASED
     Dosage: 20 MG
     Route: 048
  32. ALAZOPRAM [Concomitant]
     Indication: ANXIETY
     Route: 048
  33. DICLOFENAC [Concomitant]
     Indication: ARTHRITIS
     Dosage: 150 MG
     Route: 048
  34. ZOLPIDEM [Concomitant]
     Indication: INSOMNIA
     Dosage: 10 MG
     Route: 048
  35. CELEXA [Concomitant]
     Indication: DEPRESSION
     Dosage: 40 MG
     Route: 048
  36. GABAPENTIN [Concomitant]
     Indication: FIBROMYALGIA
     Dosage: 300 MG
     Route: 048

REACTIONS (6)
  - Fall [Recovered/Resolved]
  - Concussion [Recovered/Resolved with Sequelae]
  - Head injury [Recovered/Resolved]
  - Sinus operation [Recovered/Resolved]
  - Pneumonia [Recovered/Resolved]
  - Bronchitis [Not Recovered/Not Resolved]
